FAERS Safety Report 6414471-2 (Version None)
Quarter: 2009Q4

REPORT INFORMATION
  Report Type: 
  Country: None (occurrence: None)
  Receive Date: 20091026
  Receipt Date: 20091022
  Transmission Date: 20100525
  Serious: Yes (Death, Other)
  Sender: FDA-Public Use
  Company Number: PHEH2009US14125

PATIENT
  Sex: Female

DRUGS (4)
  1. EXJADE [Suspect]
     Indication: MYELODYSPLASTIC SYNDROME
     Dosage: 500 MG, TID
     Route: 048
     Dates: start: 20080228, end: 20090823
  2. EXJADE [Suspect]
     Indication: SERUM FERRITIN INCREASED
  3. PROCRIT [Concomitant]
     Dosage: 40000 U, QW
     Route: 058
     Dates: start: 20081001, end: 20090601
  4. BLOOD TRANSFUSION, AUXILIARY PRODUCTS [Concomitant]
     Dosage: UNK, UNK
     Dates: start: 20090526, end: 20090526

REACTIONS (2)
  - DEATH [None]
  - SERUM FERRITIN INCREASED [None]
